FAERS Safety Report 8832283 (Version 2)
Quarter: 2012Q4

REPORT INFORMATION
  Report Type: 
  Country: CA (occurrence: CA)
  Receive Date: 20121009
  Receipt Date: 20121016
  Transmission Date: 20130627
  Serious: Yes (Hospitalization, Other)
  Sender: FDA-Public Use
  Company Number: CA-ROCHE-1142151

PATIENT
  Age: 56 Year
  Sex: Female

DRUGS (9)
  1. XOLAIR [Suspect]
     Indication: ASTHMA
     Route: 058
     Dates: start: 20120808
  2. XOLAIR [Suspect]
     Route: 058
     Dates: start: 20120906, end: 20120906
  3. SINGULAIR [Concomitant]
     Route: 065
  4. AVAMYS [Concomitant]
     Route: 065
  5. FLOVENT [Concomitant]
     Route: 065
  6. REACTINE (CANADA) [Concomitant]
  7. RANITIDINE [Concomitant]
  8. MEDROL [Concomitant]
  9. NEXIUM [Concomitant]
     Route: 065

REACTIONS (19)
  - Anaphylactic shock [Not Recovered/Not Resolved]
  - Hypersensitivity [Unknown]
  - Nasal congestion [Recovering/Resolving]
  - Headache [Recovering/Resolving]
  - Urticaria [Recovered/Resolved]
  - Diarrhoea [Recovered/Resolved]
  - Rash [Recovered/Resolved]
  - Vomiting [Recovered/Resolved]
  - Nasal oedema [Recovered/Resolved]
  - Drug eruption [Recovered/Resolved]
  - Haematocrit decreased [Recovered/Resolved]
  - Swelling face [Recovered/Resolved]
  - Neutrophil count increased [Recovered/Resolved]
  - Lymphocyte count increased [Recovered/Resolved]
  - Monocyte count increased [Recovered/Resolved]
  - White blood cell count increased [Recovered/Resolved]
  - Oedema mouth [Recovered/Resolved]
  - Circumoral oedema [Recovered/Resolved]
  - Hypotension [Recovered/Resolved]
